FAERS Safety Report 8868770 (Version 1)
Quarter: 2012Q4

REPORT INFORMATION
  Report Type: 
  Country: US (occurrence: US)
  Receive Date: 20121024
  Receipt Date: 20121024
  Transmission Date: 20130627
  Serious: Yes (Other)
  Sender: FDA-Public Use
  Company Number: US-BAYER-2012-109471

PATIENT
  Age: 64 Year
  Sex: Female
  Weight: 68 kg

DRUGS (15)
  1. BAYER CHEWABLE LOW DOSE BABY ASPIRIN TABLET ORANGE [Suspect]
     Dosage: 1 DF, UNK
     Route: 048
     Dates: start: 201210
  2. METFORMIN [Concomitant]
  3. AMARYL [Concomitant]
  4. TRIAM-TIAZIDA R [Concomitant]
  5. GLUCOSAMINE W/CHONDROITIN SULFATE [Concomitant]
  6. FLEXERIL [Concomitant]
  7. OMEGA-3 [SALMO SALAR OIL] [Concomitant]
  8. CHROMIUM PICOLINATE [Concomitant]
  9. VITAMIN B12 [Concomitant]
  10. VITAMIN D3 [Concomitant]
  11. VITAMIN C [Concomitant]
  12. B COMPLEX [VITAMIN-B-KOMPLEX STANDARD] [Concomitant]
  13. CO Q10 [Concomitant]
  14. MILK THISTLE [Concomitant]
  15. CENTRUM [MINERALS NOS,VITAMINS NOS] [Concomitant]

REACTIONS (2)
  - Heart rate increased [Recovered/Resolved]
  - Initial insomnia [None]
